FAERS Safety Report 11037452 (Version 1)
Quarter: 2015Q2

REPORT INFORMATION
  Report Type: Spontaneous
  Country: US (occurrence: None)
  Receive Date: 20150415
  Receipt Date: 20150415
  Transmission Date: 20150821
  Serious: Yes (Hospitalization)
  Sender: FDA-Public Use
  Company Number: None

PATIENT
  Age: 21 Year
  Sex: Female
  Weight: 81.65 kg

DRUGS (4)
  1. ANTI ACID [Concomitant]
  2. VITAMIN C [Concomitant]
     Active Substance: ASCORBIC ACID
  3. MIDOL [Concomitant]
     Active Substance: IBUPROFEN
  4. NEXPLANON [Suspect]
     Active Substance: ETONOGESTREL
     Dates: start: 20131001, end: 20150414

REACTIONS (2)
  - Menorrhagia [None]
  - Menstrual disorder [None]

NARRATIVE: CASE EVENT DATE: 20150409
